FAERS Safety Report 5901956-8 (Version None)
Quarter: 2008Q3

REPORT INFORMATION
  Report Type: 
  Country: None (occurrence: None)
  Receive Date: 20080925
  Receipt Date: 20080903
  Transmission Date: 20090109
  Serious: No
  Sender: FDA-Public Use
  Company Number: ADE# 08-142

PATIENT
  Sex: Female

DRUGS (4)
  1. GABAPENTIN [Suspect]
     Dosage: 800 MG DAILY
  2. VOLTAREN [Concomitant]
  3. PRILOSEC [Concomitant]
  4. PRAVACHOL [Concomitant]

REACTIONS (3)
  - ASTHENIA [None]
  - INFLUENZA LIKE ILLNESS [None]
  - PHARMACEUTICAL PRODUCT COMPLAINT [None]
